FAERS Safety Report 8239501-7 (Version None)
Quarter: 2012Q1

REPORT INFORMATION
  Report Type: 
  Country: None (occurrence: None)
  Receive Date: 20120328
  Receipt Date: 20120322
  Transmission Date: 20120608
  Serious: No
  Sender: FDA-Public Use
  Company Number: US-PFIZER INC-2012075776

PATIENT

DRUGS (2)
  1. NISOLDIPINE [Suspect]
     Dosage: 17 MG, UNK
  2. AMLODIPINE BESYLATE [Suspect]
     Dosage: 10 MG, UNK

REACTIONS (2)
  - STOMATITIS [None]
  - HEADACHE [None]
